FAERS Safety Report 8319423-3 (Version None)
Quarter: 2012Q2

REPORT INFORMATION
  Report Type: 
  Country: None (occurrence: None)
  Receive Date: 20120427
  Receipt Date: 20120417
  Transmission Date: 20120825
  Serious: Yes (Death)
  Sender: FDA-Public Use
  Company Number: US-ABBOTT-12P-163-0927039-00

PATIENT
  Age: 21 Year
  Sex: Male

DRUGS (15)
  1. HYDROCODONE BITARTRATE + ACETAMINOPHEN [Suspect]
     Indication: PRODUCT USED FOR UNKNOWN INDICATION
  2. HEROIN [Suspect]
     Indication: PRODUCT USED FOR UNKNOWN INDICATION
  3. CHLORDIAZEPOXIDE [Suspect]
     Indication: PRODUCT USED FOR UNKNOWN INDICATION
  4. OXAZEPAM [Suspect]
     Indication: PRODUCT USED FOR UNKNOWN INDICATION
  5. BENZODIAZEPINES [Suspect]
     Indication: PRODUCT USED FOR UNKNOWN INDICATION
  6. ECGONINE METHYL ESTER (EME) [Suspect]
     Indication: PRODUCT USED FOR UNKNOWN INDICATION
  7. CANNABIS SATIVA [Suspect]
     Indication: PRODUCT USED FOR UNKNOWN INDICATION
  8. BENZOYLECGONINE [Suspect]
     Indication: PRODUCT USED FOR UNKNOWN INDICATION
  9. CODEINE [Suspect]
     Indication: PRODUCT USED FOR UNKNOWN INDICATION
  10. NORDIAZEPAM [Suspect]
     Indication: PRODUCT USED FOR UNKNOWN INDICATION
  11. 6-ACETYLMORPHINE [Suspect]
     Indication: PRODUCT USED FOR UNKNOWN INDICATION
  12. NICOTINE [Suspect]
     Indication: PRODUCT USED FOR UNKNOWN INDICATION
  13. COCAINE [Suspect]
     Indication: PRODUCT USED FOR UNKNOWN INDICATION
  14. DIPHENHYDRAMINE HCL [Suspect]
     Indication: PRODUCT USED FOR UNKNOWN INDICATION
  15. CAFFEINE CITRATE [Suspect]
     Indication: PRODUCT USED FOR UNKNOWN INDICATION

REACTIONS (2)
  - ACCIDENTAL DEATH [None]
  - TOXICITY TO VARIOUS AGENTS [None]
